FAERS Safety Report 4548275-2 (Version None)
Quarter: 2004Q4

REPORT INFORMATION
  Report Type: 
  Country: None (occurrence: None)
  Receive Date: 20041227
  Receipt Date: 20041008
  Transmission Date: 20050328
  Serious: No
  Sender: FDA-Public Use
  Company Number: 04P-163-0276834-00

PATIENT
  Sex: Female

DRUGS (2)
  1. HUMIRA [Suspect]
     Dosage: 40 MG, SUBCUTANEOUS;  ON HOLD
     Route: 058
  2. METHOTREXATE [Suspect]
     Dosage: ORAL;  ON HOLD
     Route: 048

REACTIONS (2)
  - NASOPHARYNGITIS [None]
  - NAUSEA [None]
